FAERS Safety Report 8225805-0 (Version None)
Quarter: 2012Q1

REPORT INFORMATION
  Report Type: 
  Country: None (occurrence: None)
  Receive Date: 20120321
  Receipt Date: 20120316
  Transmission Date: 20120608
  Serious: Yes (Other)
  Sender: FDA-Public Use
  Company Number: DE-PFIZER INC-2012057978

PATIENT
  Age: 39 Year
  Sex: Female

DRUGS (4)
  1. SERTRALINE [Concomitant]
     Indication: COMPULSIONS
  2. SERTRALINE [Concomitant]
     Indication: ANXIETY
     Dosage: 50 MG, DAILY
     Route: 048
  3. ZIPRASIDONE HYDROCHLORIDE [Suspect]
     Dosage: 80MG TO 120MG, DAILY
     Route: 048
  4. ZIPRASIDONE HYDROCHLORIDE [Suspect]
     Indication: PSYCHOTIC DISORDER
     Dosage: 40 TO 60 MG, DAILY
     Route: 048

REACTIONS (3)
  - TRISMUS [None]
  - MUSCLE SPASMS [None]
  - TONGUE SPASM [None]
